FAERS Safety Report 19414895 (Version 4)
Quarter: 2021Q3

REPORT INFORMATION
  Report Type: Report from Study
  Country: CA (occurrence: CA)
  Receive Date: 20210615
  Receipt Date: 20210906
  Transmission Date: 20211014
  Serious: Yes (Other)
  Sender: FDA-Public Use
  Company Number: CA-BRISTOL-MYERS SQUIBB COMPANY-BMS-2021-057749

PATIENT
  Age: 20 Year
  Sex: Female

DRUGS (3)
  1. MTX [METHOTREXATE] [Concomitant]
     Active Substance: METHOTREXATE SODIUM
     Indication: PRODUCT USED FOR UNKNOWN INDICATION
     Dosage: UNK
     Route: 065
  2. NAPROXEN. [Concomitant]
     Active Substance: NAPROXEN
     Indication: PRODUCT USED FOR UNKNOWN INDICATION
     Dosage: UNK
     Route: 065
  3. ABATACEPT [Suspect]
     Active Substance: ABATACEPT
     Indication: RHEUMATOID ARTHRITIS
     Dosage: 500 MILLIGRAM, Q4WK
     Route: 042
     Dates: start: 20170908

REACTIONS (5)
  - Chlamydial infection [Recovering/Resolving]
  - Nasal congestion [Unknown]
  - Fungal infection [Recovering/Resolving]
  - Nasopharyngitis [Not Recovered/Not Resolved]
  - Productive cough [Unknown]
